FAERS Safety Report 8358158-8 (Version None)
Quarter: 2012Q2

REPORT INFORMATION
  Report Type: 
  Country: None (occurrence: None)
  Receive Date: 20120514
  Receipt Date: 20120504
  Transmission Date: 20120825
  Serious: Yes (Hospitalization)
  Sender: FDA-Public Use
  Company Number: US-GLAXOSMITHKLINE-A0883497A

PATIENT
  Age: 67 Year
  Sex: Female

DRUGS (1)
  1. AVANDIA [Suspect]
     Indication: DIABETES MELLITUS
     Dosage: 4MG PER DAY
     Route: 048
     Dates: start: 20020101, end: 20070701

REACTIONS (5)
  - PLEURAL EFFUSION [None]
  - VIRAL PERICARDITIS [None]
  - PNEUMONIA [None]
  - PULMONARY CONGESTION [None]
  - CARDIAC FAILURE CONGESTIVE [None]
